FAERS Safety Report 19243832 (Version 1)
Quarter: 2021Q2

REPORT INFORMATION
  Report Type: Spontaneous
  Country: US (occurrence: US)
  Receive Date: 20210511
  Receipt Date: 20210511
  Transmission Date: 20210717
  Serious: No
  Sender: FDA-Public Use
  Company Number: US-SA-2021SA155377

PATIENT
  Sex: Female

DRUGS (4)
  1. NOVOCAINE [PROCAINE] [Concomitant]
     Dosage: UNK
     Dates: start: 20210506
  2. ARTICAINE HCL [Concomitant]
     Dosage: UNK
     Dates: start: 20210506
  3. DUPIXENT [Suspect]
     Active Substance: DUPILUMAB
     Dosage: 300 MG
  4. EPINEPHRINE. [Concomitant]
     Active Substance: EPINEPHRINE
     Dosage: UNK
     Dates: start: 20210506

REACTIONS (1)
  - Tooth extraction [Unknown]

NARRATIVE: CASE EVENT DATE: 20210506
